FAERS Safety Report 9171754 (Version 1)
Quarter: 2013Q1

REPORT INFORMATION
  Report Type: Spontaneous
  Country: IT (occurrence: None)
  Receive Date: 20130313
  Receipt Date: 20130313
  Transmission Date: 20140127
  Serious: Yes (Other)
  Sender: FDA-Public Use
  Company Number: 1622114

PATIENT
  Age: 61 Year
  Sex: Female

DRUGS (5)
  1. PACLITAXEL [Suspect]
     Indication: UTERINE CANCER
     Route: 042
     Dates: start: 20130218, end: 20130218
  2. CARBOPLATINO [Concomitant]
  3. SOLDESAM [Concomitant]
  4. TRIMETON [Concomitant]
  5. ZORAN [Concomitant]

REACTIONS (3)
  - Feeling hot [None]
  - Throat tightness [None]
  - Drug hypersensitivity [None]
